FAERS Safety Report 10057879 (Version 1)
Quarter: 2014Q2

REPORT INFORMATION
  Report Type: Spontaneous
  Country: DE (occurrence: DE)
  Receive Date: 20140404
  Receipt Date: 20140404
  Transmission Date: 20141212
  Serious: Yes (Congenital Anomaly)
  Sender: FDA-Public Use
  Company Number: GXKR2014DE001473

PATIENT
  Sex: 0

DRUGS (2)
  1. VENLAFAXINE [Suspect]
     Indication: DEPRESSION
     Dosage: 150 [MG/D ]/ 1.TRIM. 150MG/D, 2.TRIM. 150/75MG/D ALTERNATING, 3.TRIM. 150MG/D (0.-39.3 GW)
     Route: 064
     Dates: start: 20130113, end: 20131016
  2. FOLIO FORTE [Concomitant]
     Indication: PROPHYLAXIS OF NEURAL TUBE DEFECT
     Dosage: 0.8 [MG/D ]/ 1.TRIM. 0.8MG/D, THEN 0.4MG/D
     Route: 064
     Dates: start: 20130113, end: 20131016

REACTIONS (1)
  - Talipes [Recovering/Resolving]
